FAERS Safety Report 14110478 (Version 1)
Quarter: 2017Q4

REPORT INFORMATION
  Report Type: Spontaneous
  Country: US (occurrence: US)
  Receive Date: 20171019
  Receipt Date: 20171019
  Transmission Date: 20180321
  Serious: Yes (Life-Threatening)
  Sender: FDA-Public Use
  Company Number: None

PATIENT
  Age: 35 Year
  Sex: Male
  Weight: 94.9 kg

DRUGS (1)
  1. NIMODIPINE. [Suspect]
     Active Substance: NIMODIPINE
     Indication: VASOSPASM
     Dates: start: 20171017, end: 20171017

REACTIONS (2)
  - Cardio-respiratory arrest [None]
  - Incorrect route of drug administration [None]

NARRATIVE: CASE EVENT DATE: 20171017
